FAERS Safety Report 4805781-0 (Version None)
Quarter: 2005Q4

REPORT INFORMATION
  Report Type: 
  Country: None (occurrence: None)
  Receive Date: 20051018
  Receipt Date: 20051003
  Transmission Date: 20060501
  Serious: Yes (Death)
  Sender: FDA-Public Use
  Company Number: MK200510-0019-1

PATIENT
  Age: 52 Year
  Sex: Female

DRUGS (4)
  1. METHADOSE METHADONE HY ORAL CON USP [Suspect]
     Dates: end: 20010304
  2. METHADOSE METHADONE HY ORAL CON USP [Suspect]
     Dates: end: 20040304
  3. ALPRAZOLAM [Suspect]
     Dates: end: 20040304
  4. FLUOXETINE [Suspect]
     Dates: end: 20040304

REACTIONS (9)
  - ARTERIOSCLEROSIS CORONARY ARTERY [None]
  - CEREBRAL ARTERIOSCLEROSIS [None]
  - DRUG TOXICITY [None]
  - FIBROSIS [None]
  - HEPATOSPLENOMEGALY [None]
  - MYOCARDIAL INFARCTION [None]
  - NEPHROSCLEROSIS [None]
  - PULMONARY CONGESTION [None]
  - THYROID CYST [None]
